FAERS Safety Report 4949329-9 (Version None)
Quarter: 2006Q1

REPORT INFORMATION
  Report Type: 
  Country: None (occurrence: None)
  Receive Date: 20060315
  Receipt Date: 20060307
  Transmission Date: 20060701
  Serious: Yes (Disabling)
  Sender: FDA-Public Use
  Company Number: HQWYE291910MAR06

PATIENT
  Age: 73 Year
  Sex: Male

DRUGS (1)
  1. MYLOTARG [Suspect]
     Indication: ACUTE MYELOID LEUKAEMIA RECURRENT
     Dosage: NOT PROVIDED, INTRAVENOUS
     Route: 042
     Dates: start: 20040101

REACTIONS (3)
  - ASCITES [None]
  - HEPATOTOXICITY [None]
  - WEIGHT INCREASED [None]
